FAERS Safety Report 14506016 (Version 1)
Quarter: 2018Q1

REPORT INFORMATION
  Report Type: Spontaneous
  Country: FR (occurrence: FR)
  Receive Date: 20180208
  Receipt Date: 20180208
  Transmission Date: 20180509
  Serious: Yes (Other)
  Sender: FDA-Public Use
  Company Number: FR-CELGENEUS-FRA-20180109829

PATIENT
  Age: 44 Year
  Sex: Male
  Weight: 66.5 kg

DRUGS (12)
  1. VIDAZA [Suspect]
     Active Substance: AZACITIDINE
     Route: 065
     Dates: start: 20170719
  2. ARACYTINE [Concomitant]
     Active Substance: CYTARABINE
     Dosage: 18 G/M2
     Route: 065
     Dates: start: 20140120
  3. AG-221 [Suspect]
     Active Substance: ENASIDENIB
     Indication: OFF LABEL USE
  4. ARACYTINE [Concomitant]
     Active Substance: CYTARABINE
     Indication: ACUTE MYELOID LEUKAEMIA
     Route: 065
     Dates: start: 20131127
  5. ARACYTINE [Concomitant]
     Active Substance: CYTARABINE
     Dosage: 18 G/M2
     Route: 065
     Dates: start: 20140304
  6. VIDAZA [Suspect]
     Active Substance: AZACITIDINE
     Indication: ACUTE MYELOID LEUKAEMIA
     Route: 058
     Dates: start: 20161205
  7. VIDAZA [Suspect]
     Active Substance: AZACITIDINE
     Route: 065
     Dates: start: 20170519
  8. VIDAZA [Suspect]
     Active Substance: AZACITIDINE
     Route: 058
     Dates: start: 20170621
  9. VIDAZA [Suspect]
     Active Substance: AZACITIDINE
     Dosage: 75 MILLIGRAM/SQ. METER
     Route: 065
  10. ARACYTINE [Concomitant]
     Active Substance: CYTARABINE
     Route: 065
     Dates: start: 20170619, end: 201706
  11. AG-221 [Suspect]
     Active Substance: ENASIDENIB
     Indication: ACUTE MYELOID LEUKAEMIA
     Dosage: 100 MILLIGRAM
     Route: 065
     Dates: start: 20170620
  12. FLUDARABINE [Concomitant]
     Active Substance: FLUDARABINE PHOSPHATE
     Indication: ACUTE MYELOID LEUKAEMIA
     Route: 065
     Dates: start: 20140505

REACTIONS (3)
  - Hepatic failure [Unknown]
  - Bronchopulmonary aspergillosis [Recovering/Resolving]
  - Acute myeloid leukaemia recurrent [Unknown]

NARRATIVE: CASE EVENT DATE: 201704
